FAERS Safety Report 9270150 (Version 2)
Quarter: 2013Q2

REPORT INFORMATION
  Report Type: Spontaneous
  Country: IT (occurrence: IT)
  Receive Date: 20130503
  Receipt Date: 20130520
  Transmission Date: 20140414
  Serious: Yes (Death, Hospitalization)
  Sender: FDA-Public Use
  Company Number: IT-JNJFOC-20130415644

PATIENT
  Age: 80 Year
  Sex: Male

DRUGS (4)
  1. SPORANOX [Suspect]
     Indication: BRONCHITIS
     Route: 048
     Dates: start: 20120915, end: 20120920
  2. AZITHROMYCIN [Suspect]
     Indication: BRONCHITIS
     Route: 048
     Dates: start: 20120915, end: 20120919
  3. IGROSELES [Concomitant]
     Indication: PRODUCT USED FOR UNKNOWN INDICATION
     Route: 065
  4. COUMADIN [Concomitant]
     Indication: PRODUCT USED FOR UNKNOWN INDICATION
     Route: 065

REACTIONS (6)
  - Haemolytic anaemia [Fatal]
  - Jaundice [Fatal]
  - Renal failure [Fatal]
  - Generalised oedema [Fatal]
  - Thrombocytopenia [Fatal]
  - Hepatic failure [Fatal]
